FAERS Safety Report 9374832 (Version 2)
Quarter: 2013Q3

REPORT INFORMATION
  Report Type: Report from Study
  Country: US (occurrence: US)
  Receive Date: 20130628
  Receipt Date: 20130719
  Transmission Date: 20140515
  Serious: Yes (Disabling, Other)
  Sender: FDA-Public Use
  Company Number: US-US-EMD SERONO, INC.-7220101

PATIENT
  Age: 61 Year
  Sex: Male
  Weight: 84 kg

DRUGS (3)
  1. REBIF [Suspect]
     Indication: MULTIPLE SCLEROSIS
     Route: 058
     Dates: start: 2008, end: 20130422
  2. REBIF [Suspect]
     Route: 058
     Dates: start: 201306
  3. IBUPROFEN [Concomitant]
     Indication: PREMEDICATION

REACTIONS (3)
  - Hypertension [Recovering/Resolving]
  - Muscle spasticity [Not Recovered/Not Resolved]
  - Central nervous system lesion [Not Recovered/Not Resolved]
